FAERS Safety Report 7770723-5 (Version None)
Quarter: 2011Q3

REPORT INFORMATION
  Report Type: 
  Country: None (occurrence: None)
  Receive Date: 20110922
  Receipt Date: 20110208
  Transmission Date: 20111222
  Serious: Yes (Other)
  Sender: FDA-Public Use
  Company Number: US-ASTRAZENECA-2011SE01814

PATIENT
  Age: 43 Year
  Sex: Female

DRUGS (4)
  1. SEROQUEL XR [Suspect]
     Indication: BIPOLAR DISORDER
     Route: 048
  2. BIRTH CONTROL PILLS [Concomitant]
     Indication: HEADACHE
  3. SEROQUEL XR [Suspect]
     Route: 048
     Dates: start: 20090101
  4. PROPRANOLOL [Concomitant]
     Indication: HEADACHE

REACTIONS (7)
  - ABNORMAL WEIGHT GAIN [None]
  - DEPRESSION [None]
  - SUICIDAL IDEATION [None]
  - ACTIVITIES OF DAILY LIVING IMPAIRED [None]
  - DRUG INEFFECTIVE [None]
  - ADVERSE EVENT [None]
  - INCREASED APPETITE [None]
